FAERS Safety Report 6961188-1 (Version None)
Quarter: 2010Q3

REPORT INFORMATION
  Report Type: 
  Country: None (occurrence: None)
  Receive Date: 20100901
  Receipt Date: 20100826
  Transmission Date: 20110219
  Serious: Yes (Other)
  Sender: FDA-Public Use
  Company Number: US-WATSON-2010-11522

PATIENT
  Sex: Female
  Weight: 58.503 kg

DRUGS (2)
  1. OXYTROL [Suspect]
     Indication: HYPERTONIC BLADDER
     Dosage: 1 PATCH, TWICE WEEKLY
     Route: 062
     Dates: start: 20100723
  2. OXYTROL [Suspect]
     Dosage: 1 PATCH, TWICE WEEKLY
     Route: 062
     Dates: start: 20030101, end: 20100723

REACTIONS (4)
  - DRUG INEFFECTIVE [None]
  - FALL [None]
  - JOINT INJURY [None]
  - SPINAL COMPRESSION FRACTURE [None]
